FAERS Safety Report 10495908 (Version 2)
Quarter: 2014Q4

REPORT INFORMATION
  Report Type: Spontaneous
  Country: US (occurrence: US)
  Receive Date: 20141003
  Receipt Date: 20141114
  Transmission Date: 20150528
  Serious: Yes (Other)
  Sender: FDA-Public Use
  Company Number: US-MERCK-1409USA014981

PATIENT
  Age: 68 Year
  Sex: Male

DRUGS (3)
  1. METOPROLOL [Concomitant]
     Active Substance: METOPROLOL
  2. JANUVIA [Suspect]
     Active Substance: SITAGLIPTIN PHOSPHATE
     Indication: DIABETES MELLITUS
     Dosage: 100 MG, QD
     Route: 048
     Dates: start: 201407, end: 20140927
  3. TRADJENTA [Suspect]
     Active Substance: LINAGLIPTIN

REACTIONS (21)
  - Abnormal behaviour [Recovered/Resolved]
  - Musculoskeletal chest pain [Unknown]
  - Hepatic calcification [Unknown]
  - Pancreatitis [Unknown]
  - Fatigue [Recovered/Resolved]
  - Confusional state [Not Recovered/Not Resolved]
  - Insomnia [Unknown]
  - Product name confusion [Unknown]
  - Wrong drug administered [Unknown]
  - Dyspnoea [Unknown]
  - Hepatic cancer [Not Recovered/Not Resolved]
  - Pain [Unknown]
  - Polyuria [Unknown]
  - Pain [Not Recovered/Not Resolved]
  - Malaise [Not Recovered/Not Resolved]
  - Social avoidant behaviour [Unknown]
  - Staring [Not Recovered/Not Resolved]
  - Abdominal discomfort [Unknown]
  - Product quality issue [Unknown]
  - Decreased appetite [Unknown]
  - Vomiting [Unknown]

NARRATIVE: CASE EVENT DATE: 2014
